FAERS Safety Report 4289172-X (Version None)
Quarter: 2004Q1

REPORT INFORMATION
  Report Type: 
  Country: None (occurrence: None)
  Receive Date: 20040209
  Receipt Date: 20040209
  Transmission Date: 20041129
  Serious: No
  Sender: FDA-Public Use
  Company Number: None

PATIENT
  Sex: Female
  Weight: 88.4514 kg

DRUGS (1)
  1. TOPAMAX [Suspect]
     Indication: PARTIAL SEIZURES
     Dosage: 100 MG 2X PER DA ORAL
     Route: 048
     Dates: start: 20031201, end: 20040207

REACTIONS (4)
  - ABNORMAL SENSATION IN EYE [None]
  - EYE DISORDER [None]
  - HEADACHE [None]
  - VISION BLURRED [None]
